FAERS Safety Report 7627552-2 (Version None)
Quarter: 2011Q3

REPORT INFORMATION
  Report Type: 
  Country: None (occurrence: None)
  Receive Date: 20110721
  Receipt Date: 20110713
  Transmission Date: 20111222
  Serious: Yes (Hospitalization, Other)
  Sender: FDA-Public Use
  Company Number: IR-TYCO HEALTHCARE/MALLINCKRODT-T201101326

PATIENT
  Age: 14 Day
  Sex: Male

DRUGS (1)
  1. METHADOSE [Suspect]
     Dosage: UNK

REACTIONS (3)
  - THROMBOCYTOSIS [None]
  - MATERNAL EXPOSURE DURING PREGNANCY [None]
  - DRUG WITHDRAWAL SYNDROME NEONATAL [None]
